FAERS Safety Report 14224877 (Version 1)
Quarter: 2017Q4

REPORT INFORMATION
  Report Type: Spontaneous
  Country: US (occurrence: US)
  Receive Date: 20171127
  Receipt Date: 20171127
  Transmission Date: 20180321
  Serious: No
  Sender: FDA-Public Use
  Company Number: US-TEVA-746989USA

PATIENT
  Sex: Male

DRUGS (1)
  1. RABEPRAZOLE [Suspect]
     Active Substance: RABEPRAZOLE
     Indication: GASTROOESOPHAGEAL REFLUX DISEASE
     Route: 065
     Dates: start: 2010, end: 20170203

REACTIONS (9)
  - Heart rate decreased [Recovering/Resolving]
  - Nerve injury [Recovering/Resolving]
  - Hypoaesthesia [Recovering/Resolving]
  - Magnesium deficiency [Recovering/Resolving]
  - Drug ineffective [Unknown]
  - Visual impairment [Recovering/Resolving]
  - Anaemia [Unknown]
  - Vitamin B12 deficiency [Recovering/Resolving]
  - Drug dose omission [Unknown]

NARRATIVE: CASE EVENT DATE: 2013
